FAERS Safety Report 26068383 (Version 1)
Quarter: 2025Q4

REPORT INFORMATION
  Report Type: Spontaneous
  Country: AR (occurrence: AR)
  Receive Date: 20251120
  Receipt Date: 20251120
  Transmission Date: 20260118
  Serious: Yes (Death, Hospitalization, Other)
  Sender: Onesource Specialty Pharma
  Company Number: AR-STRIDES ARCOLAB LIMITED-2025OS001230

PATIENT
  Age: 37 Year
  Sex: Male

DRUGS (3)
  1. MYCOPHENOLATE MOFETIL [Suspect]
     Active Substance: MYCOPHENOLATE MOFETIL
     Indication: Immunosuppressant drug therapy
     Dosage: UNK
     Route: 065
  2. TACROLIMUS [Suspect]
     Active Substance: TACROLIMUS
     Indication: Immunosuppressant drug therapy
     Dosage: UNK
     Route: 065
  3. PREDNISONE [Suspect]
     Active Substance: PREDNISONE
     Indication: Immunosuppressant drug therapy
     Dosage: UNK
     Route: 065

REACTIONS (4)
  - Gastric perforation [Fatal]
  - Multiple organ dysfunction syndrome [Fatal]
  - Gastrointestinal mucormycosis [Fatal]
  - Sepsis [Fatal]
